FAERS Safety Report 16301383 (Version 1)
Quarter: 2019Q2

REPORT INFORMATION
  Report Type: Report from Study
  Country: US (occurrence: US)
  Receive Date: 20190510
  Receipt Date: 20190510
  Transmission Date: 20190711
  Serious: Yes (Death, Other)
  Sender: FDA-Public Use
  Company Number: US-GILEAD-2019-0407087

PATIENT
  Age: 59 Year
  Sex: Male

DRUGS (1)
  1. IDELALISIB [Suspect]
     Active Substance: IDELALISIB
     Indication: LYMPHOCYTIC LEUKAEMIA
     Dosage: 1 DOSAGE FORM, BID
     Route: 048
     Dates: start: 201903

REACTIONS (1)
  - Death [Fatal]

NARRATIVE: CASE EVENT DATE: 20190501
